FAERS Safety Report 10217764 (Version 2)
Quarter: 2014Q3

REPORT INFORMATION
  Report Type: Report from Study
  Country: AU (occurrence: AU)
  Receive Date: 20140604
  Receipt Date: 20140716
  Transmission Date: 20150326
  Serious: Yes (Hospitalization)
  Sender: FDA-Public Use
  Company Number: AU-SA-2014SA068537

PATIENT
  Age: 91 Year
  Sex: Female

DRUGS (8)
  1. ALL OTHER THERAPEUTIC PRODUCTS [Concomitant]
     Active Substance: UNSPECIFIED INGREDIENT
  2. ALL OTHER THERAPEUTIC PRODUCTS [Concomitant]
     Active Substance: UNSPECIFIED INGREDIENT
  3. SIMVASTATIN. [Concomitant]
     Active Substance: SIMVASTATIN
  4. TEMAZE [Concomitant]
     Active Substance: TEMAZEPAM
  5. NEXIUM [Concomitant]
     Active Substance: ESOMEPRAZOLE MAGNESIUM
  6. ALL OTHER THERAPEUTIC PRODUCTS [Concomitant]
     Active Substance: UNSPECIFIED INGREDIENT
  7. LANTUS [Suspect]
     Active Substance: INSULIN GLARGINE
     Indication: PRODUCT USED FOR UNKNOWN INDICATION
     Route: 065
     Dates: start: 20131101
  8. DURIDE [Concomitant]

REACTIONS (6)
  - Syncope [Not Recovered/Not Resolved]
  - Tachycardia [Not Recovered/Not Resolved]
  - Lethargy [Not Recovered/Not Resolved]
  - Cardiac assistance device user [Not Recovered/Not Resolved]
  - Weight increased [Not Recovered/Not Resolved]
  - Extrasystoles [Not Recovered/Not Resolved]
